FAERS Safety Report 8300286-7 (Version None)
Quarter: 2012Q2

REPORT INFORMATION
  Report Type: 
  Country: None (occurrence: None)
  Receive Date: 20120420
  Receipt Date: 20120416
  Transmission Date: 20120825
  Serious: Yes (Other)
  Sender: FDA-Public Use
  Company Number: US-PFIZER INC-2012065236

PATIENT
  Sex: Female
  Weight: 72.6 kg

DRUGS (3)
  1. LIPITOR [Concomitant]
     Indication: BLOOD CHOLESTEROL INCREASED
     Dosage: 10 MG, 1X/DAY
     Route: 048
  2. SERTRALINE [Concomitant]
     Indication: DEPRESSION
     Dosage: 0.5 MG, 1X/DAY
  3. ESTRING [Suspect]
     Indication: MENOPAUSE
     Dosage: UNK
     Route: 067
     Dates: start: 20120302, end: 20120309

REACTIONS (1)
  - FUNGAL INFECTION [None]
